FAERS Safety Report 12484142 (Version 1)
Quarter: 2016Q2

REPORT INFORMATION
  Report Type: Spontaneous
  Country: US (occurrence: None)
  Receive Date: 20160620
  Receipt Date: 20160620
  Transmission Date: 20160815
  Serious: Yes (Death)
  Sender: FDA-Public Use
  Company Number: None

PATIENT
  Age: 51 Year
  Sex: Male
  Weight: 99.79 kg

DRUGS (1)
  1. CITALOPRAM [Suspect]
     Active Substance: CITALOPRAM HYDROBROMIDE
     Indication: DEPRESSION
     Dosage: IN THE MORNING  TAKEN BY MOUTH
     Route: 048
     Dates: start: 20141024, end: 20141205

REACTIONS (3)
  - Physical assault [None]
  - Aggression [None]
  - Completed suicide [None]

NARRATIVE: CASE EVENT DATE: 20141205
